FAERS Safety Report 4686498-2 (Version None)
Quarter: 2005Q2

REPORT INFORMATION
  Report Type: 
  Country: None (occurrence: None)
  Receive Date: 20050606
  Receipt Date: 20050525
  Transmission Date: 20051028
  Serious: Yes (Hospitalization)
  Sender: FDA-Public Use
  Company Number: MK200505-0069-2

PATIENT
  Age: 35 Year
  Sex: Female

DRUGS (1)
  1. ANAFRANIL CAP [Suspect]
     Indication: OBSESSIVE-COMPULSIVE DISORDER
     Dosage: 350-375 MG QD
     Dates: start: 19910101, end: 20050201

REACTIONS (10)
  - BACK PAIN [None]
  - BRAIN OPERATION [None]
  - CHOLECYSTECTOMY [None]
  - DEHYDRATION [None]
  - EROSIVE OESOPHAGITIS [None]
  - GASTRITIS EROSIVE [None]
  - HYSTERECTOMY [None]
  - NAUSEA [None]
  - ORAL INTAKE REDUCED [None]
  - PAIN [None]
